FAERS Safety Report 4598955-8 (Version None)
Quarter: 2005Q1

REPORT INFORMATION
  Report Type: 
  Country: None (occurrence: None)
  Receive Date: 20050302
  Receipt Date: 20050214
  Transmission Date: 20050727
  Serious: No
  Sender: FDA-Public Use
  Company Number: A0546787A

PATIENT
  Age: 50 Year
  Sex: Male
  Weight: 81.2392 kg

DRUGS (1)
  1. WELLBUTRIN XL [Suspect]
     Indication: ILL-DEFINED DISORDER
     Dosage: PER DAY / ORAL
     Route: 048
     Dates: start: 20050111, end: 20050213

REACTIONS (4)
  - BLOOD CREATININE INCREASED [None]
  - GRAND MAL CONVULSION [None]
  - POSTICTAL STATE [None]
  - REFUSAL OF TREATMENT BY PATIENT [None]
